FAERS Safety Report 21321639 (Version 1)
Quarter: 2022Q3

REPORT INFORMATION
  Report Type: Spontaneous
  Country: US (occurrence: None)
  Receive Date: 20220909
  Receipt Date: 20220909
  Transmission Date: 20221026
  Serious: Yes (Hospitalization)
  Sender: FDA-Public Use
  Company Number: None

PATIENT
  Sex: Male

DRUGS (1)
  1. ABIRATERONE [Suspect]
     Active Substance: ABIRATERONE
     Dosage: 1000MG DAILY ORAL?
     Route: 048

REACTIONS (7)
  - Malaise [None]
  - Nausea [None]
  - Dizziness [None]
  - Nausea [None]
  - Hyperhidrosis [None]
  - Blood potassium decreased [None]
  - Heart rate increased [None]
